FAERS Safety Report 22531474 (Version 1)
Quarter: 2023Q2

REPORT INFORMATION
  Report Type: Spontaneous
  Country: US (occurrence: US)
  Receive Date: 20230607
  Receipt Date: 20230607
  Transmission Date: 20230722
  Serious: Yes (Hospitalization, Other)
  Sender: FDA-Public Use
  Company Number: US-MYLANLABS-2023M1059475

PATIENT
  Age: 56 Year
  Sex: Female

DRUGS (9)
  1. LENALIDOMIDE [Suspect]
     Active Substance: LENALIDOMIDE
     Indication: Follicular lymphoma
     Dosage: UNK
     Route: 065
  2. MYCOPHENOLATE MOFETIL [Suspect]
     Active Substance: MYCOPHENOLATE MOFETIL
     Indication: Erythema multiforme
     Dosage: 1000 MILLIGRAM, BID
     Route: 065
  3. TACROLIMUS [Suspect]
     Active Substance: TACROLIMUS
     Indication: Erythema multiforme
     Dosage: 1 UNK, SWISH-AND-SPIT TREATMENT: 1MG CAPSULE DISSOLVED IN 240ML OF WATER
     Route: 061
  4. APREMILAST [Suspect]
     Active Substance: APREMILAST
     Indication: Erythema multiforme
     Dosage: 30 MILLIGRAM, QD
     Route: 065
  5. IMMUNE GLOBULIN NOS [Suspect]
     Active Substance: IMMUNE GLOBULIN NOS
     Indication: Erythema multiforme
     Dosage: UNK
     Route: 042
  6. WATER [Concomitant]
     Active Substance: WATER
     Indication: Vehicle solution use
     Dosage: 240 MILLILITER, SWISH-AND-SPIT TREATMENT: TACROLIMUS 1MG CAPSULE DISSOLVED IN 240ML OF WATER
     Route: 061
  7. TAFASITAMAB [Concomitant]
     Active Substance: TAFASITAMAB
     Indication: Follicular lymphoma
     Dosage: UNK
     Route: 065
  8. PREDNISONE [Concomitant]
     Active Substance: PREDNISONE
     Indication: Erythema multiforme
     Dosage: 1 MILLIGRAM/KILOGRAM
     Route: 065
  9. PREDNISONE [Concomitant]
     Active Substance: PREDNISONE
     Dosage: 15 MILLIGRAM, QD, DOSE TAPERED
     Route: 065

REACTIONS (2)
  - Erythema multiforme [Recovered/Resolved]
  - Drug ineffective [Unknown]
